FAERS Safety Report 22294793 (Version 1)
Quarter: 2023Q2

REPORT INFORMATION
  Report Type: Spontaneous
  Country: None (occurrence: US)
  Receive Date: 20230508
  Receipt Date: 20230508
  Transmission Date: 20230721
  Serious: No
  Sender: FDA-Public Use
  Company Number: US-ACIC Fine Chemicals Inc-2141216

PATIENT
  Sex: Female

DRUGS (1)
  1. TRANEXAMIC ACID [Suspect]
     Active Substance: TRANEXAMIC ACID
     Dates: start: 20230501

REACTIONS (2)
  - Product package associated injury [Unknown]
  - Product container issue [Unknown]

NARRATIVE: CASE EVENT DATE: 20230501
